FAERS Safety Report 8873331 (Version 2)
Quarter: 2013Q2

REPORT INFORMATION
  Report Type: Spontaneous
  Country: US (occurrence: US)
  Receive Date: 20121023
  Receipt Date: 20130422
  Transmission Date: 20140414
  Serious: Yes (Life-Threatening, Other)
  Sender: FDA-Public Use
  Company Number: US-ASTELLAS-2012US007951

PATIENT
  Age: 70 Year
  Sex: Female

DRUGS (25)
  1. LEXISCAN [Suspect]
     Indication: SCAN MYOCARDIAL PERFUSION
     Dosage: UNK
     Route: 065
     Dates: start: 20120428, end: 20120428
  2. ATENOLOL [Suspect]
     Indication: PRODUCT USED FOR UNKNOWN INDICATION
     Dosage: 50 MG, UID/QD
     Route: 048
  3. DICLOFENAC                         /00372302/ [Concomitant]
     Indication: PRODUCT USED FOR UNKNOWN INDICATION
     Dosage: 25 MG, BID
     Route: 065
  4. DICLOFENAC                         /00372302/ [Concomitant]
     Dosage: 75 MG, TID
     Route: 048
  5. LEUCOVORIN                         /00566701/ [Concomitant]
     Indication: PRODUCT USED FOR UNKNOWN INDICATION
     Dosage: 5 MG, WEEKLY
     Route: 065
  6. METHOTREXATE [Concomitant]
     Indication: PRODUCT USED FOR UNKNOWN INDICATION
     Dosage: 17.5 MG, WEEKLY
     Route: 065
  7. ZOCOR [Concomitant]
     Indication: PRODUCT USED FOR UNKNOWN INDICATION
     Dosage: 20 MG, UID/QD
     Route: 048
  8. AMBIEN [Concomitant]
     Indication: INSOMNIA
     Dosage: 5 MG, PRN
     Route: 048
  9. AMBIEN [Concomitant]
     Dosage: 10 MG, PRN
     Route: 048
  10. ORENCIA [Concomitant]
     Indication: PRODUCT USED FOR UNKNOWN INDICATION
     Dosage: UNK
     Route: 042
  11. TUMS                               /00193601/ [Concomitant]
     Indication: PRODUCT USED FOR UNKNOWN INDICATION
  12. OMEPRAZOLE [Concomitant]
     Indication: PRODUCT USED FOR UNKNOWN INDICATION
     Dosage: 20 MG, UID/QD
     Route: 048
  13. MILK THISTLE                       /01131701/ [Concomitant]
     Indication: PRODUCT USED FOR UNKNOWN INDICATION
     Dosage: 250 MG, UID/QD
     Route: 065
  14. ALENDRONATE [Concomitant]
     Indication: PRODUCT USED FOR UNKNOWN INDICATION
     Dosage: 70 MG, WEEKLY
     Route: 048
  15. CALCIUM + VITAMIN D                /01483701/ [Concomitant]
     Indication: PRODUCT USED FOR UNKNOWN INDICATION
     Dosage: 1 DF, UID/QD
     Route: 065
  16. LEXAPRO [Concomitant]
     Indication: PRODUCT USED FOR UNKNOWN INDICATION
     Dosage: 10 MG, UID/QD
     Route: 048
  17. CITALOPRAM [Concomitant]
     Indication: PRODUCT USED FOR UNKNOWN INDICATION
     Dosage: 20 MG, UID/QD
     Route: 065
  18. ASPIRIN [Concomitant]
     Indication: PRODUCT USED FOR UNKNOWN INDICATION
     Dosage: 81 MG, UID/QD
     Route: 048
  19. BISACODYL [Concomitant]
     Indication: CONSTIPATION
     Dosage: 1 DF, PRN
     Route: 054
  20. MILK OF MAGNESIA [Concomitant]
     Indication: CONSTIPATION
     Dosage: 30 ML, PRN
     Route: 048
  21. MAGNESIUM SULFATE [Concomitant]
     Indication: HYPOMAGNESAEMIA
     Dosage: 100 ML, PRN
     Route: 042
  22. POTASSIUM CHLORIDE [Concomitant]
     Indication: HYPOKALAEMIA
     Dosage: 20 MEQ, UNKNOWN/D
     Route: 048
  23. POTASSIUM CHLORIDE [Concomitant]
     Dosage: 10 MEQ, PRN
     Route: 042
  24. COMPAZINE                          /00013302/ [Concomitant]
     Indication: NAUSEA
     Dosage: 5 MG, PRN
     Route: 048
  25. FLEET ENEMA                        /00129701/ [Concomitant]
     Indication: CONSTIPATION
     Dosage: 133 ML, PRN
     Route: 054

REACTIONS (7)
  - Cardiac arrest [Recovered/Resolved]
  - Convulsion [Recovered/Resolved]
  - Nodal rhythm [Recovered/Resolved]
  - Nausea [Recovered/Resolved]
  - Vomiting [Recovered/Resolved]
  - Somnolence [Unknown]
  - Ventricular extrasystoles [Recovered/Resolved]
